FAERS Safety Report 9074084 (Version 1)
Quarter: 2013Q1

REPORT INFORMATION
  Report Type: Report from Study
  Country: US (occurrence: US)
  Receive Date: 20130129
  Receipt Date: 20130129
  Transmission Date: 20140127
  Serious: No
  Sender: FDA-Public Use
  Company Number: US-ABBOTT-12P-163-0916043-00

PATIENT
  Sex: Male
  Weight: 182.51 kg

DRUGS (17)
  1. HUMIRA 40 MG/0.8 ML PEN [Suspect]
     Indication: RHEUMATOID ARTHRITIS
     Route: 058
     Dates: start: 2007
  2. ACCOLADE [Concomitant]
     Indication: ASTHMA
  3. ALFUZOSIN [Concomitant]
     Indication: PRODUCT USED FOR UNKNOWN INDICATION
  4. AMITRIPTYLINE [Concomitant]
     Indication: NEUROPATHY PERIPHERAL
  5. CYMBALTA [Concomitant]
     Indication: NEUROPATHY PERIPHERAL
     Dosage: 60 AT HS 30 IN AM
  6. LEUPROLIDE [Concomitant]
     Indication: DIARRHOEA
  7. LOSARTAN POTASSIUM [Concomitant]
     Indication: HYPERTENSION
  8. OXYBUTYNAL [Concomitant]
     Indication: PROSTATIC DISORDER
  9. PANTOPRAZOLE [Concomitant]
     Indication: GASTROOESOPHAGEAL REFLUX DISEASE
  10. RANITIDINE [Concomitant]
     Indication: GASTROOESOPHAGEAL REFLUX DISEASE
  11. SULFASALAZINE [Concomitant]
     Indication: RHEUMATOID ARTHRITIS
  12. DEMADEX [Concomitant]
     Indication: FLUID RETENTION
  13. ZOMIG [Concomitant]
     Indication: MIGRAINE
  14. HUMULOG [Concomitant]
     Indication: PRODUCT USED FOR UNKNOWN INDICATION
     Dosage: 75/25  IN AE
  15. HUMULOG [Concomitant]
     Indication: PRODUCT USED FOR UNKNOWN INDICATION
     Dosage: AT DINNER
  16. HUMULIN [Concomitant]
     Indication: DIABETES MELLITUS
     Dosage: AT BEDTIME
  17. HYDROCODONE [Concomitant]
     Indication: SPINAL COLUMN STENOSIS

REACTIONS (2)
  - Nail infection [Recovered/Resolved]
  - Skin discolouration [Recovered/Resolved]
